FAERS Safety Report 18265398 (Version 1)
Quarter: 2020Q3

REPORT INFORMATION
  Report Type: Other
  Country: US (occurrence: US)
  Receive Date: 20200914
  Receipt Date: 20200914
  Transmission Date: 20201103
  Serious: No
  Sender: FDA-Public Use
  Company Number: US-LEADIANT BIOSCIENCES INC-2020STPI000112

PATIENT
  Sex: Female

DRUGS (2)
  1. MATULANE [Suspect]
     Active Substance: PROCARBAZINE HYDROCHLORIDE
     Dosage: 150 MILLIGRAM, QD DAYS 8 TO 21 EVERY 6 WEEKS
     Dates: start: 20190122
  2. GLEOSTINE [Concomitant]
     Active Substance: LOMUSTINE

REACTIONS (2)
  - Rash [Not Recovered/Not Resolved]
  - Blood count abnormal [Not Recovered/Not Resolved]
